FAERS Safety Report 5201015-6 (Version None)
Quarter: 2007Q1

REPORT INFORMATION
  Report Type: 
  Country: None (occurrence: None)
  Receive Date: 20070108
  Receipt Date: 20070105
  Transmission Date: 20070707
  Serious: Yes (Hospitalization)
  Sender: FDA-Public Use
  Company Number: IT-GLAXOSMITHKLINE-B0453045A

PATIENT
  Age: 57 Year
  Sex: Male

DRUGS (1)
  1. AUGMENTIN '125' [Suspect]
     Indication: DRUG USE FOR UNKNOWN INDICATION
     Dosage: 1G TWICE PER DAY
     Route: 048
     Dates: start: 20061215, end: 20061216

REACTIONS (7)
  - ATRIAL FIBRILLATION [None]
  - BLOOD GLUCOSE ABNORMAL [None]
  - DERMATITIS BULLOUS [None]
  - DYSPNOEA [None]
  - ERYTHEMA [None]
  - PYREXIA [None]
  - VASCULITIS [None]
